FAERS Safety Report 11607024 (Version 2)
Quarter: 2016Q4

REPORT INFORMATION
  Report Type: Spontaneous
  Country: US (occurrence: US)
  Receive Date: 20151007
  Receipt Date: 20161005
  Transmission Date: 20170206
  Serious: No
  Sender: FDA-Public Use
  Company Number: US-AMGEN-USASP2015094235

PATIENT
  Age: 63 Year
  Sex: Female
  Weight: 63.39 kg

DRUGS (2)
  1. PANTOPRAZOLE [Concomitant]
     Active Substance: PANTOPRAZOLE SODIUM
     Dosage: 40 MG, QD
     Route: 048
  2. PROLIA [Suspect]
     Active Substance: DENOSUMAB
     Indication: PRODUCT USED FOR UNKNOWN INDICATION
     Dosage: UNK
     Route: 065

REACTIONS (9)
  - Hypoaesthesia [Unknown]
  - Tendon pain [Unknown]
  - Blepharospasm [Unknown]
  - Muscle spasms [Unknown]
  - Periarthritis [Unknown]
  - Post procedural infection [Unknown]
  - Infection [Unknown]
  - Musculoskeletal disorder [Unknown]
  - Adverse event [Unknown]

NARRATIVE: CASE EVENT DATE: 201409
